FAERS Safety Report 9286368 (Version 23)
Quarter: 2016Q1

REPORT INFORMATION
  Report Type: Report from Study
  Country: CA (occurrence: CA)
  Receive Date: 20130513
  Receipt Date: 20160303
  Transmission Date: 20160526
  Serious: Yes (Hospitalization, Other)
  Sender: FDA-Public Use
  Company Number: CA-INCYTE CORPORATION-2013IN000827

PATIENT
  Age: 69 Year
  Sex: Male

DRUGS (52)
  1. TRAZODONE [Concomitant]
     Active Substance: TRAZODONE HYDROCHLORIDE
     Indication: PRODUCT USED FOR UNKNOWN INDICATION
     Dosage: UNKNOWN
  2. LIPITOR [Concomitant]
     Active Substance: ATORVASTATIN CALCIUM
     Route: 065
  3. MIRTAZAPINE. [Concomitant]
     Active Substance: MIRTAZAPINE
     Indication: PRODUCT USED FOR UNKNOWN INDICATION
     Dosage: UNKNOWN
  4. CANDESARTAN [Concomitant]
     Active Substance: CANDESARTAN
     Dosage: 8 MG, QD
     Route: 065
  5. ADVAIR HFA [Concomitant]
     Active Substance: FLUTICASONE PROPIONATE\SALMETEROL XINAFOATE
     Route: 065
  6. LACTULOSE. [Concomitant]
     Active Substance: LACTULOSE
     Route: 065
  7. VENTOLIN [Concomitant]
     Active Substance: ALBUTEROL SULFATE
     Route: 065
  8. SOTALOL. [Concomitant]
     Active Substance: SOTALOL
     Dosage: 1 DF, BID
     Route: 065
  9. SOTALOL. [Concomitant]
     Active Substance: SOTALOL
     Dosage: 1 DF, BID
     Route: 065
  10. MIRTAZAPINE. [Concomitant]
     Active Substance: MIRTAZAPINE
     Route: 065
  11. MIRTAZAPINE. [Concomitant]
     Active Substance: MIRTAZAPINE
     Route: 065
  12. ADVAIR HFA [Concomitant]
     Active Substance: FLUTICASONE PROPIONATE\SALMETEROL XINAFOATE
     Indication: PRODUCT USED FOR UNKNOWN INDICATION
     Dosage: UNKNOWN
  13. ADVAIR HFA [Concomitant]
     Active Substance: FLUTICASONE PROPIONATE\SALMETEROL XINAFOATE
     Route: 065
  14. LACTULOSE. [Concomitant]
     Active Substance: LACTULOSE
     Indication: PRODUCT USED FOR UNKNOWN INDICATION
     Dosage: UNKNOWN
  15. RATIO-CEFUROXIME [Concomitant]
     Indication: PRODUCT USED FOR UNKNOWN INDICATION
     Dosage: UNKNOWN
     Route: 065
  16. VENTOLIN [Concomitant]
     Active Substance: ALBUTEROL SULFATE
     Route: 065
  17. SOTALOL. [Concomitant]
     Active Substance: SOTALOL
     Dosage: 1 DF, BID
     Route: 065
  18. LIPITOR [Concomitant]
     Active Substance: ATORVASTATIN CALCIUM
     Indication: PRODUCT USED FOR UNKNOWN INDICATION
     Dosage: UNKNOWN
  19. ATENOLOL. [Concomitant]
     Active Substance: ATENOLOL
     Route: 065
  20. ATENOLOL. [Concomitant]
     Active Substance: ATENOLOL
     Route: 065
  21. VENTOLIN [Concomitant]
     Active Substance: ALBUTEROL SULFATE
     Indication: PRODUCT USED FOR UNKNOWN INDICATION
     Dosage: UNKNOWN
  22. TRAZODONE [Concomitant]
     Active Substance: TRAZODONE HYDROCHLORIDE
     Route: 065
  23. ASA [Concomitant]
     Active Substance: ASPIRIN
     Route: 065
  24. PANTOLOC//PANTOPRAZOLE SODIUM SESQUIHYDRATE [Concomitant]
     Active Substance: PANTOPRAZOLE SODIUM
     Route: 065
  25. ADVAIR HFA [Concomitant]
     Active Substance: FLUTICASONE PROPIONATE\SALMETEROL XINAFOATE
     Route: 065
  26. LACTULOSE. [Concomitant]
     Active Substance: LACTULOSE
     Route: 065
  27. SOTALOL. [Concomitant]
     Active Substance: SOTALOL
     Dosage: 1 DF, BID
     Route: 065
  28. TRAZODONE [Concomitant]
     Active Substance: TRAZODONE HYDROCHLORIDE
     Route: 065
  29. MIRTAZAPINE. [Concomitant]
     Active Substance: MIRTAZAPINE
     Route: 065
  30. ASA [Concomitant]
     Active Substance: ASPIRIN
     Route: 065
  31. PANTOLOC//PANTOPRAZOLE SODIUM SESQUIHYDRATE [Concomitant]
     Active Substance: PANTOPRAZOLE SODIUM
     Indication: PRODUCT USED FOR UNKNOWN INDICATION
     Dosage: UNKNOWN
  32. PANTOLOC//PANTOPRAZOLE SODIUM SESQUIHYDRATE [Concomitant]
     Active Substance: PANTOPRAZOLE SODIUM
     Route: 065
  33. CANDESARTAN [Concomitant]
     Active Substance: CANDESARTAN
     Indication: PRODUCT USED FOR UNKNOWN INDICATION
     Dosage: UNKNOWN
  34. CANDESARTAN [Concomitant]
     Active Substance: CANDESARTAN
     Dosage: 8 MG, QD
     Route: 065
  35. VENTOLIN [Concomitant]
     Active Substance: ALBUTEROL SULFATE
     Route: 065
  36. SOTALOL. [Concomitant]
     Active Substance: SOTALOL
     Indication: PRODUCT USED FOR UNKNOWN INDICATION
     Dosage: UNKNOWN
  37. TRAZODONE [Concomitant]
     Active Substance: TRAZODONE HYDROCHLORIDE
     Route: 065
  38. LIPITOR [Concomitant]
     Active Substance: ATORVASTATIN CALCIUM
     Route: 065
  39. ATENOLOL. [Concomitant]
     Active Substance: ATENOLOL
     Indication: PRODUCT USED FOR UNKNOWN INDICATION
     Dosage: UNKNOWN
  40. ASA [Concomitant]
     Active Substance: ASPIRIN
     Indication: PRODUCT USED FOR UNKNOWN INDICATION
     Dosage: UNKNOWN
  41. LACTULOSE. [Concomitant]
     Active Substance: LACTULOSE
     Route: 065
  42. RATIO-CEFUROXIME [Concomitant]
     Route: 065
  43. TRAZODONE [Concomitant]
     Active Substance: TRAZODONE HYDROCHLORIDE
     Route: 065
  44. LIPITOR [Concomitant]
     Active Substance: ATORVASTATIN CALCIUM
     Route: 065
  45. LIPITOR [Concomitant]
     Active Substance: ATORVASTATIN CALCIUM
     Route: 065
  46. MIRTAZAPINE. [Concomitant]
     Active Substance: MIRTAZAPINE
     Route: 065
  47. ATENOLOL. [Concomitant]
     Active Substance: ATENOLOL
     Route: 065
  48. ASA [Concomitant]
     Active Substance: ASPIRIN
     Route: 065
  49. JAKAFI [Suspect]
     Active Substance: RUXOLITINIB
     Indication: MYELOFIBROSIS
     Dosage: 10 MG, BID
     Route: 048
     Dates: start: 20130409
  50. ATENOLOL. [Concomitant]
     Active Substance: ATENOLOL
     Route: 065
  51. PANTOLOC//PANTOPRAZOLE SODIUM SESQUIHYDRATE [Concomitant]
     Active Substance: PANTOPRAZOLE SODIUM
     Route: 065
  52. CANDESARTAN [Concomitant]
     Active Substance: CANDESARTAN
     Dosage: 8 MG, QD
     Route: 065

REACTIONS (29)
  - Muscular weakness [Unknown]
  - White blood cell count increased [Unknown]
  - Blood count abnormal [Unknown]
  - Aneurysm [Unknown]
  - Bronchitis [Recovering/Resolving]
  - Somnolence [Unknown]
  - Influenza [Unknown]
  - Asthenia [Unknown]
  - Pneumonia [Recovering/Resolving]
  - Weight decreased [Unknown]
  - Abdominal pain upper [Not Recovered/Not Resolved]
  - Diarrhoea [Unknown]
  - Abdominal pain [Not Recovered/Not Resolved]
  - Feeling abnormal [Unknown]
  - Platelet count decreased [Unknown]
  - Haemoglobin decreased [Recovering/Resolving]
  - Faeces hard [Unknown]
  - Contusion [Unknown]
  - Malaise [Unknown]
  - Gastric dilatation [Unknown]
  - Decreased appetite [Unknown]
  - Constipation [Unknown]
  - Splenomegaly [Unknown]
  - Drug ineffective [Unknown]
  - Lung abscess [Recovering/Resolving]
  - Cholelithiasis [Unknown]
  - Genital hypoaesthesia [Unknown]
  - Tremor [Unknown]
  - Dysphonia [Unknown]

NARRATIVE: CASE EVENT DATE: 20130415
